FAERS Safety Report 8145353-6 (Version None)
Quarter: 2012Q1

REPORT INFORMATION
  Report Type: 
  Country: None (occurrence: None)
  Receive Date: 20120214
  Receipt Date: 20120202
  Transmission Date: 20120608
  Serious: Yes (Other)
  Sender: FDA-Public Use
  Company Number: USW201202-000005

PATIENT
  Age: 84 Year
  Sex: Male
  Weight: 63.5036 kg

DRUGS (12)
  1. MIRALAX [Concomitant]
  2. STOOL SOFTNER [Concomitant]
  3. FLAXSEED OIL [Concomitant]
  4. SINEMET [Suspect]
     Indication: PARKINSON'S DISEASE
     Dosage: 25/100 MG TABLET, FOUR TIMES DAILY, ORAL    50/200 EVERY DAY AT NIGHT
     Route: 048
  5. SINEMET [Suspect]
     Indication: PARKINSON'S DISEASE
     Dosage: 25/100 MG, HALF TABLET, FIVE TIMES DAILY, ORAL
     Route: 048
  6. APOKYN (APOMORPHINE HYDROCHLORIDE) (APOMORPHINE HYDROCHLORIDE) (APOMOR [Suspect]
     Indication: PARKINSON'S DISEASE
     Dosage: 0.2 ML IN MORNING, 0.3 ML IN AFTERNOON, SUBCUTANEOUS
     Route: 058
     Dates: start: 20110714, end: 20120202
  7. SUGAR FREE COUGH DROPS [Concomitant]
  8. MAGNESIUM PHOSPHATE [Concomitant]
  9. ASPIRIN [Concomitant]
  10. NAMENDA [Suspect]
     Indication: MEMORY IMPAIRMENT
     Dosage: 10 MG TABLET, TWO TIMES DAILY, ORAL
     Route: 048
  11. MULTI-VITAMINS [Concomitant]
  12. MURINEX [Concomitant]

REACTIONS (1)
  - PALPITATIONS [None]
